FAERS Safety Report 11619027 (Version 1)
Quarter: 2015Q4

REPORT INFORMATION
  Report Type: Report from Study
  Country: TR (occurrence: TR)
  Receive Date: 20151012
  Receipt Date: 20151012
  Transmission Date: 20160304
  Serious: Yes (Hospitalization, Other)
  Sender: FDA-Public Use
  Company Number: PHHO2015TR013345

PATIENT
  Age: 35 Year
  Sex: Female
  Weight: 74.5 kg

DRUGS (4)
  1. CABERGOLINE. [Suspect]
     Active Substance: CABERGOLINE
     Indication: PITUITARY-DEPENDENT CUSHING^S SYNDROME
     Dosage: 0.5 MG, UNK
     Route: 048
     Dates: start: 20150120, end: 20150816
  2. DOMPERIDONE W/RABEPRAZOLE [Concomitant]
     Dosage: 60 MG, UNK
     Route: 065
     Dates: start: 20150816, end: 20150816
  3. SOM230 [Suspect]
     Active Substance: PASIREOTIDE
     Indication: PITUITARY-DEPENDENT CUSHING^S SYNDROME
     Dosage: 0.9 MG, UNK
     Route: 058
     Dates: start: 20140904, end: 20150816
  4. DOMPERIDONE W/RABEPRAZOLE [Concomitant]
     Indication: PRODUCT USED FOR UNKNOWN INDICATION
     Dosage: 30 MG, UNK
     Route: 065
     Dates: start: 201408, end: 20150816

REACTIONS (4)
  - Hepatic enzyme increased [Unknown]
  - Abdominal pain upper [Recovered/Resolved]
  - Transaminases increased [Unknown]
  - Cholelithiasis [Recovered/Resolved]

NARRATIVE: CASE EVENT DATE: 20150513
